FAERS Safety Report 6879383-9 (Version None)
Quarter: 2010Q3

REPORT INFORMATION
  Report Type: 
  Country: None (occurrence: None)
  Receive Date: 20100728
  Receipt Date: 20100719
  Transmission Date: 20110219
  Serious: Yes (Hospitalization)
  Sender: FDA-Public Use
  Company Number: US-ELI_LILLY_AND_COMPANY-US201007004202

PATIENT
  Sex: Male

DRUGS (11)
  1. GEMCITABINE HCL [Suspect]
     Indication: TRANSITIONAL CELL CARCINOMA
     Dosage: 1640 MG, UNK
     Dates: start: 20100609
  2. PACLITAXEL [Suspect]
     Indication: TRANSITIONAL CELL CARCINOMA
     Dosage: 533 MG, UNK
     Dates: start: 20100609
  3. CARBOPLATIN [Suspect]
     Indication: TRANSITIONAL CELL CARCINOMA
     Dosage: 492 MG, UNK
     Dates: start: 20100609
  4. ACETAMINOPHEN [Concomitant]
     Route: 048
  5. COLACE [Concomitant]
     Route: 048
  6. METOPROLOL TARTRATE [Concomitant]
     Route: 048
  7. PROCHLORPERAZINE [Concomitant]
     Indication: NAUSEA
     Dosage: 10 MG, UNK
     Route: 048
  8. SIMVASTATIN [Concomitant]
     Dosage: 40 MG, UNK
     Dates: start: 20061117
  9. SOTALOL HCL [Concomitant]
     Dosage: 80 MG, UNK
     Dates: start: 20061117
  10. MARFARIN [Concomitant]
     Dosage: 5 MG, UNK
     Route: 048
     Dates: start: 20100522
  11. CIPROFLOXACIN [Concomitant]
     Dosage: 500 MG, UNK
     Route: 048

REACTIONS (2)
  - HYPONATRAEMIA [None]
  - HYPOTENSION [None]
